FAERS Safety Report 7574098-6 (Version None)
Quarter: 2011Q2

REPORT INFORMATION
  Report Type: 
  Country: None (occurrence: None)
  Receive Date: 20110627
  Receipt Date: 20110620
  Transmission Date: 20111010
  Serious: Yes (Hospitalization)
  Sender: FDA-Public Use
  Company Number: PL-TEVA-287541ISR

PATIENT
  Age: 9 Year
  Sex: Female

DRUGS (1)
  1. LAMOTRGINE [Suspect]
     Indication: EPILEPSY

REACTIONS (3)
  - NEUTROPENIA [None]
  - HISTIOCYTOSIS [None]
  - ANAEMIA [None]
